FAERS Safety Report 8410359-6 (Version None)
Quarter: 2012Q2

REPORT INFORMATION
  Report Type: 
  Country: None (occurrence: None)
  Receive Date: 20120605
  Receipt Date: 20120522
  Transmission Date: 20120825
  Serious: Yes (Hospitalization)
  Sender: FDA-Public Use
  Company Number: DE-UCBSA-058115

PATIENT
  Sex: Female
  Weight: 75 kg

DRUGS (12)
  1. OMEPRAZOLE [Concomitant]
     Route: 048
  2. SIMVASTATIN [Concomitant]
     Indication: HYPERLIPIDAEMIA
     Route: 048
     Dates: start: 20060101
  3. PREDNISONE TAB [Concomitant]
     Indication: RHEUMATOID ARTHRITIS
     Route: 048
     Dates: start: 20090101
  4. CIMZIA [Suspect]
     Route: 058
     Dates: start: 20110201, end: 20110101
  5. SIMVASTATIN [Concomitant]
     Indication: HYPERLIPIDAEMIA
  6. ENALAPRIL MALEATE [Concomitant]
     Indication: HYPERTENSION
  7. OMEPRAZOLE [Concomitant]
     Indication: PROPHYLAXIS
     Route: 048
     Dates: start: 20090101
  8. OMEPRAZOLE [Concomitant]
     Indication: GASTRITIS
     Route: 048
     Dates: start: 20090101
  9. PREDNISOLONE [Concomitant]
     Indication: MUSCULOSKELETAL PAIN
  10. OMEPRAZOLE [Concomitant]
     Route: 048
  11. DICLOFENAC SODIUM [Concomitant]
     Indication: PAIN
  12. BENALAPRIL [Concomitant]
     Route: 048
     Dates: start: 20090101

REACTIONS (1)
  - PNEUMONIA [None]
